FAERS Safety Report 10197725 (Version 1)
Quarter: 2014Q2

REPORT INFORMATION
  Report Type: Spontaneous
  Country: US (occurrence: US)
  Receive Date: 20140527
  Receipt Date: 20140527
  Transmission Date: 20141212
  Serious: No
  Sender: FDA-Public Use
  Company Number: US-PFIZER INC-2014143055

PATIENT
  Sex: Male

DRUGS (3)
  1. GABAPENTIN [Suspect]
     Indication: FIBROMYALGIA
     Dosage: UNK
  2. GABAPENTIN [Suspect]
     Indication: NEURALGIA
  3. GABAPENTIN [Suspect]
     Indication: DIABETIC NEUROPATHY

REACTIONS (1)
  - Drug ineffective [Unknown]
